FAERS Safety Report 9716891 (Version 2)
Quarter: 2013Q4

REPORT INFORMATION
  Report Type: Spontaneous
  Country: FR (occurrence: None)
  Receive Date: 20131125
  Receipt Date: 20131203
  Transmission Date: 20140711
  Serious: Yes (Hospitalization, Disabling)
  Sender: FDA-Public Use
  Company Number: 7250298

PATIENT
  Age: 24 Year
  Sex: Female

DRUGS (1)
  1. LEVOTHYROX [Suspect]
     Indication: HYPOTHYROIDISM
     Route: 048
     Dates: start: 200911, end: 20130927

REACTIONS (9)
  - Caesarean section [None]
  - Blood thyroid stimulating hormone increased [None]
  - Temperature intolerance [None]
  - Asthenia [None]
  - Constipation [None]
  - Maternal exposure timing unspecified [None]
  - Foetal growth restriction [None]
  - Oligohydramnios [None]
  - Exposure during pregnancy [None]
